FAERS Safety Report 9613244 (Version 2)
Quarter: 2013Q4

REPORT INFORMATION
  Report Type: Spontaneous
  Country: IT (occurrence: IT)
  Receive Date: 20131010
  Receipt Date: 20131017
  Transmission Date: 20140711
  Serious: Yes (Congenital Anomaly)
  Sender: FDA-Public Use
  Company Number: IT-GLAXOSMITHKLINE-B0929204A

PATIENT
  Age: 0 Day
  Sex: Male

DRUGS (1)
  1. LAMICTAL [Suspect]
     Indication: GRAND MAL CONVULSION
     Dosage: 100MG PER DAY
     Dates: start: 20120927

REACTIONS (5)
  - Cleft palate [Not Recovered/Not Resolved]
  - Pyelocaliectasis [Unknown]
  - Live birth [Unknown]
  - Atrial septal defect [Unknown]
  - Foetal exposure during pregnancy [Unknown]
